FAERS Safety Report 9633470 (Version 1)
Quarter: 2013Q4

REPORT INFORMATION
  Report Type: Spontaneous
  Country: US (occurrence: US)
  Receive Date: 20131021
  Receipt Date: 20131021
  Transmission Date: 20140711
  Serious: No
  Sender: FDA-Public Use
  Company Number: US-BAUSCH-BL-2013-003314

PATIENT
  Age: 58 Year
  Sex: Female
  Weight: 60.84 kg

DRUGS (2)
  1. BEPREVE (BEPOTASTINE BESILATE OPHTHALMIC SOLUTION 1.5%) [Suspect]
     Indication: EYE ALLERGY
     Dosage: 1 DROP IN EACH EYE; TWICE DAILY; OPHTHALMIC
     Route: 047
     Dates: start: 20130517
  2. VITAMINS NOS [Concomitant]

REACTIONS (1)
  - Dysgeusia [Not Recovered/Not Resolved]
